FAERS Safety Report 10546023 (Version 4)
Quarter: 2014Q4

REPORT INFORMATION
  Report Type: Spontaneous
  Country: CN (occurrence: CN)
  Receive Date: 20141027
  Receipt Date: 20141114
  Transmission Date: 20150529
  Serious: No
  Sender: FDA-Public Use
  Company Number: CN-009507513-1410CHN012115

PATIENT
  Age: 30 Year
  Sex: Female
  Weight: 45 kg

DRUGS (13)
  1. DOCETAXEL. [Suspect]
     Active Substance: DOCETAXEL
     Indication: CHEMOTHERAPY
     Dosage: 80 MG, D1, TREATMENT CYCLE 1/UNK
     Route: 041
     Dates: start: 20140916, end: 20140916
  2. CYCLOPHOSPHAMIDE. [Suspect]
     Active Substance: CYCLOPHOSPHAMIDE
     Indication: CHEMOTHERAPY
     Dosage: 800 MG, D1, TREATMENT CYCLE 1/UNK
     Route: 041
     Dates: start: 20140916, end: 20140916
  3. GRANULOCYTE COLONY STIMULATING FACTOR (UNSPECIFIED) [Concomitant]
     Active Substance: FILGRASTIM
     Indication: WHITE BLOOD CELL COUNT INCREASED
     Dosage: 150 MICROGRAM, ONCE
     Route: 058
     Dates: start: 20140919, end: 20140919
  4. OMEPRAZOLE SODIUM [Concomitant]
     Active Substance: OMEPRAZOLE SODIUM
     Indication: PEPTIC ULCER HAEMORRHAGE
     Dosage: 40 MG, QD
     Route: 041
     Dates: start: 20140916, end: 20140916
  5. EMEND [Suspect]
     Active Substance: APREPITANT
     Indication: PROPHYLAXIS OF NAUSEA AND VOMITING
     Dosage: 125 MG, DAY 1.
     Route: 048
     Dates: start: 20140916, end: 20140916
  6. EMEND [Suspect]
     Active Substance: APREPITANT
     Dosage: 80 MG, DAY 2.
     Route: 048
     Dates: start: 20140917, end: 20140917
  7. EMEND [Suspect]
     Active Substance: APREPITANT
     Dosage: 80 MG, DAY 3
     Route: 048
     Dates: start: 20140918
  8. YI GAN CAO SUAN MEI ZHU SHE YE [Concomitant]
     Indication: PROPHYLAXIS
     Dosage: 200 MG, QD
     Route: 041
     Dates: start: 20140913, end: 20140916
  9. THYMALFASIN [Concomitant]
     Active Substance: THYMALFASIN
     Indication: IMMUNE ENHANCEMENT THERAPY
     Dosage: TOTAL DAILY DOSE: 1.6 MG, QID
     Route: 058
     Dates: start: 20140914, end: 20140919
  10. ZHU SHE YONG FU HE FU MEI [Concomitant]
     Indication: WHITE BLOOD CELL COUNT INCREASED
     Dosage: STRENGTH: 200 UNITS, QD, TOTAL DAILY DOSE: 400 UNITS
     Route: 041
     Dates: start: 20140913, end: 20140916
  11. GRANISETRON HYDROCHLORIDE. [Concomitant]
     Active Substance: GRANISETRON HYDROCHLORIDE
     Indication: PROPHYLAXIS OF NAUSEA AND VOMITING
     Dosage: 3 MG, QD
     Route: 041
     Dates: start: 20140916, end: 20140916
  12. ELECTROLYTES (UNSPECIFIED) (+) SODIUM LACTATE [Concomitant]
     Indication: ELECTROLYTE IMBALANCE
     Dosage: 500 ML, QD
     Route: 041
     Dates: start: 20140916, end: 20140916
  13. VITAMINS (UNSPECIFIED) [Concomitant]
     Active Substance: VITAMINS
     Indication: VITAMIN SUPPLEMENTATION
     Dosage: 1 BOX, QD
     Route: 041
     Dates: start: 20140916, end: 20140916

REACTIONS (1)
  - White blood cell count decreased [Recovered/Resolved]

NARRATIVE: CASE EVENT DATE: 20140919
